FAERS Safety Report 22777403 (Version 2)
Quarter: 2025Q2

REPORT INFORMATION
  Report Type: Spontaneous
  Country: ES (occurrence: ES)
  Receive Date: 20230802
  Receipt Date: 20250505
  Transmission Date: 20250716
  Serious: Yes (Other)
  Sender: AUROBINDO
  Company Number: ES-STADA-281741

PATIENT
  Age: 37 Year
  Sex: Male

DRUGS (15)
  1. ACITRETIN [Suspect]
     Active Substance: ACITRETIN
     Indication: Alopecia scarring
     Route: 048
  2. AZITHROMYCIN [Suspect]
     Active Substance: AZITHROMYCIN
     Indication: Alopecia scarring
     Route: 065
  3. CLINDAMYCIN [Suspect]
     Active Substance: CLINDAMYCIN
     Indication: Alopecia scarring
     Route: 065
  4. CLOBETASOL [Suspect]
     Active Substance: CLOBETASOL
     Indication: Alopecia scarring
     Route: 061
  5. DAPSONE [Suspect]
     Active Substance: DAPSONE
     Indication: Alopecia scarring
     Route: 048
  6. ISOTRETINOIN [Suspect]
     Active Substance: ISOTRETINOIN
     Indication: Alopecia scarring
     Route: 065
  7. RIFAMPIN [Suspect]
     Active Substance: RIFAMPIN
     Indication: Alopecia scarring
     Route: 065
  8. ADALIMUMAB [Concomitant]
     Active Substance: ADALIMUMAB
     Indication: Alopecia scarring
     Route: 058
  9. ADALIMUMAB [Concomitant]
     Active Substance: ADALIMUMAB
     Route: 065
  10. ADALIMUMAB [Concomitant]
     Active Substance: ADALIMUMAB
     Route: 065
  11. IXEKIZUMAB [Concomitant]
     Active Substance: IXEKIZUMAB
     Indication: Alopecia scarring
     Route: 058
  12. IXEKIZUMAB [Concomitant]
     Active Substance: IXEKIZUMAB
     Route: 058
  13. IXEKIZUMAB [Concomitant]
     Active Substance: IXEKIZUMAB
     Route: 058
  14. PIMECROLIMUS [Concomitant]
     Active Substance: PIMECROLIMUS
     Indication: Alopecia scarring
     Route: 061
  15. TRIAMCINOLONE [Concomitant]
     Active Substance: TRIAMCINOLONE
     Indication: Alopecia scarring
     Route: 065

REACTIONS (2)
  - Off label use [Unknown]
  - Drug ineffective for unapproved indication [Recovering/Resolving]
